FAERS Safety Report 24570565 (Version 1)
Quarter: 2024Q4

REPORT INFORMATION
  Report Type: Report from Study
  Country: GR (occurrence: GR)
  Receive Date: 20241031
  Receipt Date: 20241031
  Transmission Date: 20250114
  Serious: Yes (Hospitalization)
  Sender: TAKEDA
  Company Number: GR-TAKEDA-2024TUS098164

PATIENT
  Age: 44 Year
  Sex: Female

DRUGS (3)
  1. LANADELUMAB [Suspect]
     Active Substance: LANADELUMAB
     Indication: Hereditary angioedema
     Dosage: 1500 INTERNATIONAL UNIT
     Route: 050
  2. LANADELUMAB [Suspect]
     Active Substance: LANADELUMAB
     Dosage: 1500 INTERNATIONAL UNIT
     Route: 065
  3. IRON [Concomitant]
     Active Substance: IRON
     Dosage: UNK, UNK, QD
     Route: 065

REACTIONS (1)
  - Uterine leiomyoma [Recovering/Resolving]

NARRATIVE: CASE EVENT DATE: 20240924
